FAERS Safety Report 8249612 (Version 2)
Quarter: 2012Q4

REPORT INFORMATION
  Report Type: 
  Country: US (occurrence: US)
  Receive Date: 20111117
  Receipt Date: 20121212
  Transmission Date: 20130627
  Serious: Yes (Hospitalization)
  Sender: FDA-Public Use
  Company Number: US-GLAXOSMITHKLINE-A0910425A

PATIENT
  Age: 70 Year
  Sex: Male

DRUGS (1)
  1. AVANDIA [Suspect]
     Indication: DIABETES MELLITUS
     Route: 048
     Dates: end: 2007

REACTIONS (4)
  - Cerebrovascular accident [Recovering/Resolving]
  - Carotid artery occlusion [Unknown]
  - Atrial fibrillation [Unknown]
  - Heart rate irregular [Unknown]
